FAERS Safety Report 4811195-X (Version None)
Quarter: 2005Q4

REPORT INFORMATION
  Report Type: 
  Country: None (occurrence: None)
  Receive Date: 20051027
  Receipt Date: 20051021
  Transmission Date: 20060501
  Serious: Yes (Life-Threatening, Hospitalization, Other)
  Sender: FDA-Public Use
  Company Number: US-JNJFOC-20051004877

PATIENT
  Age: 17 Year
  Sex: Male

DRUGS (2)
  1. DURAGESIC-100 [Suspect]
     Indication: INTENTIONAL DRUG MISUSE
     Route: 062
  2. ATIVAN [Suspect]
     Indication: INTENTIONAL DRUG MISUSE

REACTIONS (2)
  - OVERDOSE [None]
  - RESPIRATORY FAILURE [None]
